FAERS Safety Report 25729426 (Version 1)
Quarter: 2025Q3

REPORT INFORMATION
  Report Type: Spontaneous
  Country: US (occurrence: US)
  Receive Date: 20250827
  Receipt Date: 20250827
  Transmission Date: 20251021
  Serious: Yes (Hospitalization, Other)
  Sender: REGENERON
  Company Number: US-REGENERON PHARMACEUTICALS, INC.-2025-134428

PATIENT
  Sex: Female

DRUGS (2)
  1. EYLEA [Suspect]
     Active Substance: AFLIBERCEPT
     Indication: Neovascular age-related macular degeneration
     Dosage: 2 MG, EVERY SIX WEEKS INTO RIGHT EYE (FORMULATION: PFS GERRESHEIMER)
     Dates: start: 20200803
  2. EYLEA [Suspect]
     Active Substance: AFLIBERCEPT
     Indication: Cytomegalovirus infection

REACTIONS (3)
  - Adverse event [Unknown]
  - Endophthalmitis [Unknown]
  - Off label use [Unknown]

NARRATIVE: CASE EVENT DATE: 20200803
